FAERS Safety Report 5071553-8 (Version None)
Quarter: 2006Q3

REPORT INFORMATION
  Report Type: 
  Country: None (occurrence: None)
  Receive Date: 20060804
  Receipt Date: 20060518
  Transmission Date: 20061208
  Serious: Yes (Other)
  Sender: FDA-Public Use
  Company Number: US-ROCHE-448987

PATIENT
  Age: 55 Year
  Sex: Female

DRUGS (2)
  1. PEGASYS [Suspect]
     Dosage: ROUTE OF ADMINISTRATION REPORTED AS INJ.
     Route: 050
     Dates: start: 20051210
  2. RIBAVIRIN [Suspect]
     Route: 048
     Dates: start: 20051210

REACTIONS (6)
  - BREAST MASS [None]
  - DYSPNOEA [None]
  - FATIGUE [None]
  - INSOMNIA [None]
  - NAUSEA [None]
  - TOOTHACHE [None]
